FAERS Safety Report 5026074-5 (Version None)
Quarter: 2006Q2

REPORT INFORMATION
  Report Type: 
  Country: None (occurrence: None)
  Receive Date: 20060612
  Receipt Date: 20060612
  Transmission Date: 20061013
  Serious: Yes (Hospitalization)
  Sender: FDA-Public Use
  Company Number: None

PATIENT
  Sex: Male
  Weight: 72.5755 kg

DRUGS (2)
  1. TRICOR [Suspect]
     Indication: HYPERTRIGLYCERIDAEMIA
     Dates: start: 20050616, end: 20060601
  2. LIPITOR [Suspect]
     Indication: HYPERTRIGLYCERIDAEMIA
     Dates: start: 20020307, end: 20060610

REACTIONS (4)
  - DRUG INTERACTION [None]
  - INFLAMMATION [None]
  - MYOSITIS [None]
  - RHABDOMYOLYSIS [None]
